FAERS Safety Report 9398043 (Version 1)
Quarter: 2013Q3

REPORT INFORMATION
  Report Type: Spontaneous
  Country: CN (occurrence: None)
  Receive Date: 20130709
  Receipt Date: 20130709
  Transmission Date: 20140515
  Serious: Yes (Other)
  Sender: FDA-Public Use
  Company Number: FK201302270

PATIENT
  Age: 66 Year
  Sex: Female

DRUGS (6)
  1. SODIUM CHLORIDE [Suspect]
     Indication: PARENTERAL NUTRITION
     Dosage: 40 ML, 1 IN 1 D, INTRAVENOUS (NOT OTHERWISE SPECIFIED)
     Route: 042
     Dates: start: 20120923, end: 20120924
  2. POTASSIUM CHLORIDE [Suspect]
     Indication: PARENTERAL NUTRITION
     Dosage: 30 ML, 1 IN 1 D, INTRAVENOUS (NOT OTHERWISE SPECIFIED)
     Route: 042
     Dates: start: 20120923, end: 20120924
  3. NOVAMIN [Suspect]
     Dosage: 42 GM, 1 IN 1 D, INTRAVENOUS (NOT OTHERWISE SPECIFIED)
     Route: 042
     Dates: start: 20120923, end: 20120924
  4. STRUCTOLIPID [Suspect]
     Indication: PARENTERAL NUTRITION
     Dosage: 50 GM, 1 IN 1 D, INTRAVENOUS (NOT OTHERWISE SPECIFIED)
     Route: 042
     Dates: start: 20120923, end: 20120924
  5. DIPEPTIVEN [Suspect]
     Indication: PARENTERAL NUTRITION
     Dosage: 20 GM, 1 IN 1 D, INTRAVENOUS (NOT OTHERWISE SPECIFIED)
     Route: 042
     Dates: start: 20120923, end: 20120924
  6. FRUCTOSE [Suspect]
     Indication: PARENTERAL NUTRITION
     Dates: start: 20120923, end: 20120924

REACTIONS (6)
  - Rash erythematous [None]
  - Dizziness [None]
  - Tic [None]
  - Confusional state [None]
  - Heart rate increased [None]
  - Blood pressure decreased [None]
